FAERS Safety Report 24961765 (Version 1)
Quarter: 2025Q1

REPORT INFORMATION
  Report Type: Spontaneous
  Country: US (occurrence: US)
  Receive Date: 20250212
  Receipt Date: 20250212
  Transmission Date: 20250409
  Serious: No
  Sender: JOHNSON AND JOHNSON
  Company Number: US-JNJFOC-20250224668

PATIENT

DRUGS (7)
  1. SPRAVATO [Suspect]
     Active Substance: ESKETAMINE
     Indication: Product used for unknown indication
     Route: 045
  2. ZYPREXA [Concomitant]
     Active Substance: OLANZAPINE
  3. GABAPENTIN [Concomitant]
     Active Substance: GABAPENTIN
  4. MIRTAZAPINE [Concomitant]
     Active Substance: MIRTAZAPINE
  5. CELECOXIB [Concomitant]
     Active Substance: CELECOXIB
  6. KLONOPIN [Concomitant]
     Active Substance: CLONAZEPAM
  7. METOPROLOL [Concomitant]
     Active Substance: METOPROLOL

REACTIONS (1)
  - Tremor [Unknown]
